FAERS Safety Report 18439060 (Version 2)
Quarter: 2021Q1

REPORT INFORMATION
  Report Type: Report from Study
  Country: CO (occurrence: CO)
  Receive Date: 20201029
  Receipt Date: 20210215
  Transmission Date: 20210419
  Serious: Yes (Other)
  Sender: FDA-Public Use
  Company Number: CO-BRISTOL-MYERS SQUIBB COMPANY-BMS-2018-093064

PATIENT
  Age: 63 Year
  Sex: Male

DRUGS (2)
  1. YERVOY [Suspect]
     Active Substance: IPILIMUMAB
     Indication: MALIGNANT MELANOMA
     Dosage: 255 MILLIGRAM, Q3WK
     Route: 042
  2. NIVOLUMAB [Suspect]
     Active Substance: NIVOLUMAB
     Indication: MALIGNANT MELANOMA
     Dosage: 85 MILLIGRAM, Q3WK
     Route: 042
     Dates: start: 20180706, end: 20190805

REACTIONS (7)
  - Pleural effusion [Recovering/Resolving]
  - Dysuria [Recovering/Resolving]
  - Intentional product use issue [Recovered/Resolved]
  - Cystitis [Recovering/Resolving]
  - Skin depigmentation [Recovering/Resolving]
  - Pulmonary oedema [Recovering/Resolving]
  - Constipation [Recovering/Resolving]

NARRATIVE: CASE EVENT DATE: 20180925
